FAERS Safety Report 8612614-3 (Version None)
Quarter: 2012Q3

REPORT INFORMATION
  Report Type: 
  Country: None (occurrence: None)
  Receive Date: 20120822
  Receipt Date: 20111027
  Transmission Date: 20120928
  Serious: No
  Sender: FDA-Public Use
  Company Number: US-ASTRAZENECA-2011SE54658

PATIENT
  Age: 83 Year
  Sex: Female
  Weight: 67.6 kg

DRUGS (6)
  1. SINGULAIR [Concomitant]
     Route: 048
     Dates: start: 20070101
  2. SYMBICORT [Suspect]
     Indication: ASTHMA
     Dosage: 80/ 4.5  MCG,2 PUFFS TWICE IN A DAY
     Route: 055
     Dates: start: 20070101
  3. VIVELLE [Concomitant]
  4. SYMBICORT [Suspect]
     Dosage: 80/ 4.5  MCG,2 PUFFS ONCE IN A DAY
     Route: 055
     Dates: start: 20070101
  5. THIAZIDE [Concomitant]
     Indication: HYPERTENSION
  6. CLONAZEPAM [Concomitant]
     Indication: PHARYNGEAL DISORDER

REACTIONS (4)
  - INSOMNIA [None]
  - INCORRECT DOSE ADMINISTERED [None]
  - INCREASED BRONCHIAL SECRETION [None]
  - MALAISE [None]
